FAERS Safety Report 15884854 (Version 3)
Quarter: 2019Q2

REPORT INFORMATION
  Report Type: Spontaneous
  Country: DK (occurrence: DK)
  Receive Date: 20190129
  Receipt Date: 20190521
  Transmission Date: 20190711
  Serious: Yes (Other)
  Sender: FDA-Public Use
  Company Number: DK-ASTRAZENECA-2019SE14932

PATIENT
  Age: 54 Year
  Sex: Female

DRUGS (17)
  1. TIZANIDINE. [Suspect]
     Active Substance: TIZANIDINE
     Indication: MUSCLE TIGHTNESS
     Dosage: 4.0MG UNKNOWN
     Route: 065
  2. TIZANIDINE. [Suspect]
     Active Substance: TIZANIDINE
     Indication: HEADACHE
     Dosage: 4.0MG UNKNOWN
     Route: 065
  3. AMITRIPTYLINE [Suspect]
     Active Substance: AMITRIPTYLINE
     Indication: SLEEP DISORDER
     Dosage: 10.0MG UNKNOWN
     Route: 065
  4. AMITRIPTYLINE [Suspect]
     Active Substance: AMITRIPTYLINE
     Indication: SLEEP DISORDER
     Dosage: STARTED DECREASING DOSE OF AMITRIPTYLINE 25 MG UNKNOWN
     Route: 065
     Dates: start: 20181221
  5. STRATTERA [Concomitant]
     Active Substance: ATOMOXETINE HYDROCHLORIDE
     Indication: ATTENTION DEFICIT/HYPERACTIVITY DISORDER
     Dosage: INCREASED TO 100 MG IN DECEMBER 2018
  6. QUETIAPINE. [Suspect]
     Active Substance: QUETIAPINE
     Indication: INSOMNIA
     Dosage: UNKNOWN
     Route: 065
  7. AMITRIPTYLINE [Suspect]
     Active Substance: AMITRIPTYLINE
     Indication: SLEEP DISORDER
     Dosage: AMITRIPTYLINE 25MG WAS COMPLETELY WITHDRAWN JUST BEFORE NEW YEARS UNKNOWN
     Route: 065
     Dates: end: 201812
  8. VASTAREL [Concomitant]
     Active Substance: TRIMETAZIDINE DIHYDROCHLORIDE
     Indication: MENIERE^S DISEASE
  9. MONTELUKAST [Concomitant]
     Active Substance: MONTELUKAST SODIUM
     Indication: ASTHMA
  10. TIZANIDINE. [Suspect]
     Active Substance: TIZANIDINE
     Indication: MUSCLE TIGHTNESS
     Route: 048
     Dates: start: 20181221, end: 20190406
  11. TIZANIDINE. [Suspect]
     Active Substance: TIZANIDINE
     Indication: HEADACHE
     Route: 048
     Dates: start: 20181221, end: 20190406
  12. TIZANIDINE. [Suspect]
     Active Substance: TIZANIDINE
     Indication: HEADACHE
     Dosage: 2.0MG UNKNOWN
     Route: 048
     Dates: start: 20190406, end: 201904
  13. TIZANIDINE. [Suspect]
     Active Substance: TIZANIDINE
     Indication: MUSCLE TIGHTNESS
     Dosage: 6.0MG UNKNOWN
     Route: 065
  14. TIZANIDINE. [Suspect]
     Active Substance: TIZANIDINE
     Indication: MUSCLE TIGHTNESS
     Dosage: 2.0MG UNKNOWN
     Route: 048
     Dates: start: 20190406, end: 201904
  15. QUETIAPINE. [Suspect]
     Active Substance: QUETIAPINE
     Indication: INSOMNIA
     Dosage: 25.0MG UNKNOWN
     Route: 065
  16. TIZANIDINE. [Suspect]
     Active Substance: TIZANIDINE
     Indication: HEADACHE
     Dosage: 6.0MG UNKNOWN
     Route: 065
  17. AMITRIPTYLINE [Suspect]
     Active Substance: AMITRIPTYLINE
     Indication: SLEEP DISORDER
     Dosage: AMITRIPTYLINE WAS INCREASED FROM 10 MG TO 25 MG UNKNOWN
     Route: 065
     Dates: start: 20180919

REACTIONS (10)
  - Hallucination [Recovered/Resolved]
  - Hallucinations, mixed [Recovering/Resolving]
  - Anxiety [Recovering/Resolving]
  - Sleep disorder [Unknown]
  - Stress [Recovering/Resolving]
  - Depression [Recovering/Resolving]
  - Suicidal ideation [Recovering/Resolving]
  - Feeling abnormal [Not Recovered/Not Resolved]
  - Hallucination, visual [Recovering/Resolving]
  - Nausea [Unknown]

NARRATIVE: CASE EVENT DATE: 20181221
